FAERS Safety Report 9891725 (Version 4)
Quarter: 2014Q2

REPORT INFORMATION
  Report Type: Report from Study
  Country: LT (occurrence: LT)
  Receive Date: 20140212
  Receipt Date: 20140429
  Transmission Date: 20141212
  Serious: Yes (Hospitalization)
  Sender: FDA-Public Use
  Company Number: LT-ROCHE-1347086

PATIENT
  Age: 27 Year
  Sex: Female
  Weight: 66 kg

DRUGS (3)
  1. BEVACIZUMAB [Suspect]
     Indication: OVARIAN CANCER
     Dosage: DATE OF LAST DOSE PRIOR TO SAE 17/JAN/2014
     Route: 042
     Dates: start: 20111125, end: 20140207
  2. CARBOPLATIN [Suspect]
     Indication: OVARIAN CANCER
     Dosage: MOST RECENT DOSE ON 30/MAR/2012
     Route: 042
     Dates: start: 20111125
  3. PACLITAXEL [Suspect]
     Indication: OVARIAN CANCER
     Dosage: MOST RECENT DOSE ON 30/MAR/2012
     Route: 042
     Dates: start: 20111125

REACTIONS (1)
  - Glomerulonephritis [Recovered/Resolved]
